FAERS Safety Report 10395590 (Version 1)
Quarter: 2014Q1

REPORT INFORMATION
  Report Type: Spontaneous
  Country: US (occurrence: None)
  Receive Date: 20130107
  Receipt Date: 20130107
  Transmission Date: 20141002
  Serious: No
  Sender: FDA-Public Use
  Company Number: PHEH2012US016884

PATIENT
  Age: 46 Year
  Sex: Male

DRUGS (16)
  1. GILENYA (FTY) CAPSULE [Suspect]
     Route: 048
  2. BUPROPION [Concomitant]
  3. LISINOPRIL [Concomitant]
  4. CLINDANYCIN [Concomitant]
  5. DOXAZOSIN [Concomitant]
  6. TAMSULOSIN [Concomitant]
  7. BACLOFEN [Concomitant]
  8. DOCUSATE SODIUM [Concomitant]
  9. METOPROLOL [Concomitant]
  10. TEMAZEPAM [Concomitant]
  11. HYDROCHLOROTHIAZIDE [Concomitant]
  12. PROZAC (FLUOXETINE HYDROCHLORIDE) [Concomitant]
  13. ZANTAC (RANITIDEINE HYDROCHLORIDE) [Concomitant]
  14. FAMPRIDINE [Concomitant]
  15. ZANAFLEX (TIZANIDINE HYDROCHLORIDE) [Concomitant]
  16. POTASSIUM [Concomitant]

REACTIONS (3)
  - Sunburn [None]
  - Diarrhoea [None]
  - Erythema [None]
